FAERS Safety Report 6231317-6 (Version None)
Quarter: 2009Q2

REPORT INFORMATION
  Report Type: 
  Country: None (occurrence: None)
  Receive Date: 20090616
  Receipt Date: 20090604
  Transmission Date: 20091009
  Serious: Yes (Disabling)
  Sender: FDA-Public Use
  Company Number: JP-PFIZER INC-2009218677

PATIENT
  Age: 28 Year

DRUGS (5)
  1. ZITHROMAX [Suspect]
     Indication: NASOPHARYNGITIS
     Dosage: 250 MG, 2X/DAY
     Route: 048
     Dates: start: 20090506, end: 20090508
  2. PL GRAN. [Concomitant]
  3. DASEN [Concomitant]
     Route: 048
  4. VOLTAREN [Concomitant]
     Route: 048
  5. CONTAC [Concomitant]
     Route: 048

REACTIONS (1)
  - EPILEPSY [None]
